FAERS Safety Report 5625434-9 (Version None)
Quarter: 2008Q1

REPORT INFORMATION
  Report Type: 
  Country: None (occurrence: None)
  Receive Date: 20080211
  Receipt Date: 20080128
  Transmission Date: 20080703
  Serious: Yes (Death, Hospitalization, Other)
  Sender: FDA-Public Use
  Company Number: 230924J07USA

PATIENT
  Age: 73 Year
  Sex: Male
  Weight: 49.4421 kg

DRUGS (3)
  1. REBIF [Suspect]
     Indication: MULTIPLE SCLEROSIS
     Dosage: 44 MCG, 3 IN 1 WEEKS, SUBCUTANEOUS
     Route: 058
     Dates: start: 20070601, end: 20080105
  2. TIZANIDINE HCL [Concomitant]
  3. CARDIAC MEDICATIONS (ALL OTHER THERAPEUTIC PRODUCTS) [Concomitant]

REACTIONS (7)
  - ANOREXIA [None]
  - BLADDER DISORDER [None]
  - DECUBITUS ULCER [None]
  - GASTROINTESTINAL DISORDER [None]
  - MOBILITY DECREASED [None]
  - SEPSIS [None]
  - WOUND INFECTION [None]
